FAERS Safety Report 12885891 (Version 1)
Quarter: 2016Q4

REPORT INFORMATION
  Report Type: Spontaneous
  Country: US (occurrence: US)
  Receive Date: 20161026
  Receipt Date: 20161026
  Transmission Date: 20170207
  Serious: Yes (Hospitalization)
  Sender: FDA-Public Use
  Company Number: None

PATIENT
  Age: 39 Year
  Sex: Female
  Weight: 114.5 kg

DRUGS (6)
  1. LANTUS [Suspect]
     Active Substance: INSULIN GLARGINE
     Indication: DIABETES MELLITUS
     Dosage: ? SQ
     Route: 058
  2. GLUCAGON. [Concomitant]
     Active Substance: GLUCAGON
  3. AMBIEN [Concomitant]
     Active Substance: ZOLPIDEM TARTRATE
  4. XANAX [Concomitant]
     Active Substance: ALPRAZOLAM
  5. CARAFATE [Concomitant]
     Active Substance: SUCRALFATE
  6. HUMALOG [Suspect]
     Active Substance: INSULIN LISPRO
     Indication: DIABETES MELLITUS
     Dosage: SSI SQ
     Route: 058

REACTIONS (4)
  - Hypoglycaemia [None]
  - Insulin C-peptide decreased [None]
  - Abdominal pain [None]
  - Blood insulin increased [None]

NARRATIVE: CASE EVENT DATE: 20150809
